FAERS Safety Report 7131141-6 (Version None)
Quarter: 2010Q4

REPORT INFORMATION
  Report Type: 
  Country: None (occurrence: None)
  Receive Date: 20101201
  Receipt Date: 20101122
  Transmission Date: 20110411
  Serious: Yes (Hospitalization, Other)
  Sender: FDA-Public Use
  Company Number: DE-B.I. PHARMACEUTICALS,INC./RIDGEFIELD-2010-DE-06449DE

PATIENT
  Sex: Female

DRUGS (2)
  1. SIFROL [Suspect]
     Dosage: 1X3 TABLETS
     Route: 048
  2. MADOPAR [Suspect]
     Dosage: 1X3 TABLETS
     Route: 048

REACTIONS (3)
  - ACCIDENTAL EXPOSURE [None]
  - MALAISE [None]
  - NAUSEA [None]
